FAERS Safety Report 8511252-0 (Version None)
Quarter: 2012Q3

REPORT INFORMATION
  Report Type: 
  Country: None (occurrence: None)
  Receive Date: 20120716
  Receipt Date: 20120709
  Transmission Date: 20120928
  Serious: No
  Sender: FDA-Public Use
  Company Number: US-BAYER-2012-069804

PATIENT
  Sex: Female

DRUGS (22)
  1. VALIUM [Concomitant]
     Dosage: 10 MG, BID
     Route: 048
  2. FUROSEMIDE [Concomitant]
     Dosage: 1 DF, QD
     Route: 048
  3. SPIRIVA [Concomitant]
     Dosage: 1 DF, QD
     Route: 006
  4. SERTRALINE HYDROCHLORIDE [Concomitant]
     Dosage: 150 MG, OM
  5. ALBUTEROL [Concomitant]
     Dosage: 3 ML EVERY 6 HOURS AS NEEDED
     Route: 006
  6. TESTS FOR DIABETES [Concomitant]
     Dosage: USE AS DIRECTED
  7. FISH OIL [Concomitant]
     Dosage: 1 DF, BID
     Route: 048
  8. POTASSIUM CHLORIDE [Concomitant]
     Dosage: 2 DF IN THE MORNING AND 1 DF AT  NIGHT
     Route: 048
  9. PROVENTIL-HFA [Concomitant]
     Dosage: 2 DF, QID
     Route: 006
  10. NORVASC [Concomitant]
     Dosage: 1 DF, QD
     Route: 048
  11. LIPITOR [Concomitant]
     Dosage: 1 DF, HS
     Route: 048
  12. ALEVE (CAPLET) [Suspect]
  13. NEXIUM [Concomitant]
     Dosage: 1 DF, QD
     Route: 048
  14. MULTI-VITAMIN [Concomitant]
     Dosage: 1 DF, QD
     Route: 048
  15. CALCIUMCARBONATE + VITAMIN D [Concomitant]
     Dosage: 1 DF, BID
  16. TRICOR [Concomitant]
     Dosage: 145 MG, QD
     Route: 048
  17. HUMALOG [Concomitant]
     Dosage: 10 UNITS AC PLUS MEDIUM SLIDING SCALE AC AND HS, THREE TIMES A DAY (MAX  DAILY DOSE 75 UNITS)
     Route: 058
  18. ADVAIR DISKUS 100/50 [Concomitant]
     Dosage: 1 DF, BID
     Route: 006
  19. LANTUS [Concomitant]
     Dosage: 45 DF, HS
     Route: 058
  20. METOLAZONE [Concomitant]
     Indication: SWELLING
     Dosage: 1 DF, QD
     Route: 048
  21. ATENOLOL [Concomitant]
     Dosage: 1 DF, BID
     Route: 048
  22. SINGULAIR [Concomitant]
     Dosage: 1 DF, OM
     Route: 048

REACTIONS (1)
  - HYPERSENSITIVITY [None]
